FAERS Safety Report 10733499 (Version 1)
Quarter: 2015Q1

REPORT INFORMATION
  Report Type: Report from Study
  Country: US (occurrence: US)
  Receive Date: 20150123
  Receipt Date: 20150123
  Transmission Date: 20150721
  Serious: Yes (Death, Hospitalization)
  Sender: FDA-Public Use
  Company Number: US-PFIZER INC-2015024398

PATIENT
  Age: 56 Year
  Sex: Male
  Weight: 78 kg

DRUGS (8)
  1. LISINOPRIL. [Concomitant]
     Active Substance: LISINOPRIL
     Dosage: UNK
     Dates: start: 20131002
  2. SPIRONOLACTONE. [Concomitant]
     Active Substance: SPIRONOLACTONE
     Dosage: UNK
     Dates: start: 20131101, end: 20131106
  3. WARFARIN [Concomitant]
     Active Substance: WARFARIN
     Dosage: UNK
     Dates: start: 20131027, end: 20131106
  4. EPLERENONE. [Suspect]
     Active Substance: EPLERENONE
     Dosage: UNK
     Route: 048
     Dates: start: 20131003, end: 201310
  5. AMIODARONE [Concomitant]
     Active Substance: AMIODARONE
     Dosage: UNK
     Dates: start: 2010
  6. ENOXAPARIN [Concomitant]
     Active Substance: ENOXAPARIN
     Dosage: UNK
     Dates: start: 20131001
  7. FUROSEMIDE. [Concomitant]
     Active Substance: FUROSEMIDE
     Dosage: UNK
     Dates: start: 20100901
  8. HYDRALAZINE [Concomitant]
     Active Substance: HYDRALAZINE HYDROCHLORIDE
     Dosage: UNK
     Dates: start: 20131028, end: 20131106

REACTIONS (3)
  - Cardiogenic shock [Recovered/Resolved]
  - Death [Fatal]
  - Septic shock [Recovered/Resolved]

NARRATIVE: CASE EVENT DATE: 20131027
